FAERS Safety Report 25856662 (Version 1)
Quarter: 2025Q3

REPORT INFORMATION
  Report Type: Spontaneous
  Country: US (occurrence: US)
  Receive Date: 20250929
  Receipt Date: 20250929
  Transmission Date: 20251020
  Serious: Yes (Other)
  Sender: MACLEODS
  Company Number: US-MLMSERVICE-20250908-PI638890-00323-1

PATIENT

DRUGS (1)
  1. TRIAMCINOLONE [Suspect]
     Active Substance: TRIAMCINOLONE
     Indication: Product used for unknown indication
     Route: 014
     Dates: start: 2008

REACTIONS (2)
  - Cushing^s syndrome [Recovered/Resolved]
  - Adrenal suppression [Recovered/Resolved]

NARRATIVE: CASE EVENT DATE: 20190101
